FAERS Safety Report 19849766 (Version 1)
Quarter: 2021Q3

REPORT INFORMATION
  Report Type: Spontaneous
  Country: RU (occurrence: RU)
  Receive Date: 20210917
  Receipt Date: 20210917
  Transmission Date: 20211014
  Serious: Yes (Hospitalization, Other)
  Sender: FDA-Public Use
  Company Number: RU-ASTRAZENECA-2021A726195

PATIENT
  Age: 66 Year
  Sex: Female
  Weight: 90 kg

DRUGS (3)
  1. BUDESONIDE + FORMOTEROL [Suspect]
     Active Substance: BUDESONIDE\FORMOTEROL
     Indication: ASTHMA
     Dosage: 4,5/160 MCG 2 INHALATIONS 2 TIMES A DAY AND UP TO 5 INHALATIONS
     Route: 055
  2. BUDESONIDE + FORMOTEROL [Suspect]
     Active Substance: BUDESONIDE\FORMOTEROL
     Indication: RHINITIS ALLERGIC
     Dosage: 4,5/160 MCG 2 INHALATIONS 2 TIMES A DAY AND UP TO 5 INHALATIONS
     Route: 055
  3. TIOTROPIUM BROMIDE [Concomitant]
     Active Substance: TIOTROPIUM BROMIDE

REACTIONS (5)
  - Sleep disorder [Unknown]
  - Asthma [Unknown]
  - Asphyxia [Unknown]
  - Osteoarthritis [Unknown]
  - Exercise tolerance decreased [Unknown]
